FAERS Safety Report 21169350 (Version 1)
Quarter: 2022Q3

REPORT INFORMATION
  Report Type: Spontaneous
  Country: FR (occurrence: FR)
  Receive Date: 20220804
  Receipt Date: 20220804
  Transmission Date: 20221027
  Serious: Yes (Hospitalization, Other)
  Sender: FDA-Public Use
  Company Number: FR-GSKCCFEMEA-Case-01231639_AE-45540

PATIENT
  Age: 61 Year
  Sex: Female

DRUGS (8)
  1. OLANZAPINE [Suspect]
     Active Substance: OLANZAPINE
     Indication: Product used for unknown indication
     Dosage: UNK
     Route: 065
  2. DOXEPIN HYDROCHLORIDE [Suspect]
     Active Substance: DOXEPIN HYDROCHLORIDE
     Indication: Product used for unknown indication
     Dosage: UNK
     Route: 065
  3. LAMICTAL [Suspect]
     Active Substance: LAMOTRIGINE
     Indication: Depression
     Dosage: 100 MILLIGRAM
     Route: 065
  4. LAMICTAL [Suspect]
     Active Substance: LAMOTRIGINE
     Dosage: 50 MILLIGRAM
     Route: 065
  5. LAMICTAL [Suspect]
     Active Substance: LAMOTRIGINE
     Dosage: 25 MILLIGRAM
     Route: 065
  6. LAMICTAL [Suspect]
     Active Substance: LAMOTRIGINE
     Dosage: 200 MILLIGRAM, ONCE A DAY
     Route: 065
     Dates: start: 202012, end: 202206
  7. LAMICTAL [Suspect]
     Active Substance: LAMOTRIGINE
     Dosage: 175 MILLIGRAM, ONCE A DAY
     Route: 065
     Dates: start: 20210703
  8. LAMICTAL [Suspect]
     Active Substance: LAMOTRIGINE
     Dosage: 150 MILLIGRAM, ONCE A DAY
     Route: 065
     Dates: start: 20210725

REACTIONS (18)
  - Major depression [Unknown]
  - Depression [Unknown]
  - Bipolar I disorder [Unknown]
  - Suicidal ideation [Unknown]
  - Hyperthyroidism [Unknown]
  - Mental impairment [Unknown]
  - Weight decreased [Unknown]
  - Tinnitus [Recovered/Resolved]
  - Insomnia [Unknown]
  - Mood swings [Unknown]
  - Mood altered [Unknown]
  - Anxiety [Unknown]
  - Blood thyroid stimulating hormone decreased [Unknown]
  - Feeling abnormal [Unknown]
  - Disturbance in attention [Unknown]
  - Fall [Unknown]
  - Agitation [Unknown]
  - Off label use [Unknown]

NARRATIVE: CASE EVENT DATE: 20201201
